FAERS Safety Report 9388099 (Version 5)
Quarter: 2013Q3

REPORT INFORMATION
  Report Type: Spontaneous
  Country: TW (occurrence: TW)
  Receive Date: 20130708
  Receipt Date: 20130813
  Transmission Date: 20140515
  Serious: Yes (Death, Hospitalization, Other)
  Sender: FDA-Public Use
  Company Number: TW-ABBOTT-13P-153-1113994-00

PATIENT
  Age: 79 Year
  Sex: Male

DRUGS (3)
  1. HUMIRA [Suspect]
     Indication: ANKYLOSING SPONDYLITIS
     Route: 058
     Dates: start: 20100204, end: 20130528
  2. FOSAMAX [Concomitant]
     Indication: OSTEOPOROSIS
     Route: 048
     Dates: start: 20110913
  3. FOSAMAX [Concomitant]
     Indication: ANKYLOSING SPONDYLITIS

REACTIONS (7)
  - Death [Fatal]
  - Listless [Not Recovered/Not Resolved]
  - Depressed mood [Not Recovered/Not Resolved]
  - Activities of daily living impaired [Not Recovered/Not Resolved]
  - Hepatitis fulminant [Not Recovered/Not Resolved]
  - Drug dose omission [Unknown]
  - Coma hepatic [Unknown]
